FAERS Safety Report 6305686-2 (Version None)
Quarter: 2009Q3

REPORT INFORMATION
  Report Type: 
  Country: None (occurrence: None)
  Receive Date: 20090807
  Receipt Date: 20090728
  Transmission Date: 20100115
  Serious: Yes (Other)
  Sender: FDA-Public Use
  Company Number: DSA_33864_2009

PATIENT
  Sex: Male
  Weight: 85.2762 kg

DRUGS (6)
  1. XENAZINE [Suspect]
     Indication: TORTICOLLIS
     Dosage: (12.5 MG BID), (DF)
     Dates: start: 20090407, end: 20090501
  2. XENAZINE [Suspect]
     Indication: TORTICOLLIS
     Dosage: (12.5 MG BID), (DF)
     Dates: start: 20090501, end: 20090605
  3. BACLOFEN [Concomitant]
  4. ARTANE [Concomitant]
  5. CLONAZEPAM [Concomitant]
  6. ADVIL [Concomitant]

REACTIONS (10)
  - ARTERIAL DISORDER [None]
  - CERUMEN IMPACTION [None]
  - CONJUNCTIVAL HYPERAEMIA [None]
  - DIZZINESS [None]
  - FATIGUE [None]
  - HEADACHE [None]
  - MUSCULOSKELETAL PAIN [None]
  - NECK PAIN [None]
  - VERTIGO [None]
  - VISION BLURRED [None]
